FAERS Safety Report 21243815 (Version 3)
Quarter: 2022Q4

REPORT INFORMATION
  Report Type: Spontaneous
  Country: US (occurrence: US)
  Receive Date: 20220823
  Receipt Date: 20221003
  Transmission Date: 20230113
  Serious: Yes (Death, Hospitalization, Other)
  Sender: FDA-Public Use
  Company Number: US-HORIZON THERAPEUTICS-HZN-2022-006366

PATIENT

DRUGS (3)
  1. RAYOS [Suspect]
     Active Substance: PREDNISONE
     Indication: Sinusitis bacterial
     Dosage: UNK
     Route: 065
  2. METHYLPREDNISOLONE [Suspect]
     Active Substance: METHYLPREDNISOLONE
     Indication: Vasculitis
     Dosage: UNK
     Route: 042
  3. LEVOFLOXACIN [Concomitant]
     Active Substance: LEVOFLOXACIN
     Indication: Sinusitis bacterial
     Dosage: UNK
     Route: 065

REACTIONS (7)
  - Disseminated mucormycosis [Fatal]
  - Encephalopathy [Fatal]
  - Acute kidney injury [Fatal]
  - Haemodynamic instability [Fatal]
  - Sepsis [Fatal]
  - Hyperglycaemia [Unknown]
  - Drug ineffective for unapproved indication [Unknown]
